FAERS Safety Report 9882272 (Version 2)
Quarter: 2014Q1

REPORT INFORMATION
  Report Type: Report from Study
  Country: DE (occurrence: TR)
  Receive Date: 20140207
  Receipt Date: 20140320
  Transmission Date: 20141002
  Serious: Yes (Death, Hospitalization)
  Sender: FDA-Public Use
  Company Number: DE-ACTELION-A-NJ2014-94603

PATIENT
  Age: 26 Year
  Sex: Male
  Weight: 58 kg

DRUGS (1)
  1. VENTAVIS [Suspect]
     Indication: PULMONARY HYPERTENSION
     Dosage: UNK
     Route: 055
     Dates: start: 20131002, end: 20140126

REACTIONS (3)
  - Pulmonary arterial hypertension [Fatal]
  - Myocardial infarction [Fatal]
  - Pulmonary embolism [Fatal]
